FAERS Safety Report 6467382-0 (Version None)
Quarter: 2009Q4

REPORT INFORMATION
  Report Type: 
  Country: None (occurrence: None)
  Receive Date: 20091202
  Receipt Date: 20091123
  Transmission Date: 20100525
  Serious: Yes (Life-Threatening, Hospitalization, Disabling)
  Sender: FDA-Public Use
  Company Number: A0815802A

PATIENT
  Age: 63 Year
  Sex: Female

DRUGS (11)
  1. ZANTAC [Suspect]
     Indication: PROPHYLACTIC CHEMOTHERAPY
     Route: 042
     Dates: start: 20081128, end: 20081204
  2. TYKERB [Suspect]
     Indication: BREAST CANCER METASTATIC
     Dosage: 1250MG PER DAY
     Route: 048
     Dates: start: 20091012, end: 20091026
  3. BENADRYL [Suspect]
     Indication: PROPHYLACTIC CHEMOTHERAPY
     Dates: start: 20081204
  4. CAPECITABINE [Concomitant]
     Indication: DRUG USE FOR UNKNOWN INDICATION
     Route: 065
     Dates: start: 20091201
  5. OTHER MEDICATIONS [Concomitant]
  6. PREDNISONE [Concomitant]
  7. METOPROLOL TARTRATE [Concomitant]
  8. SYNTHROID [Concomitant]
  9. DEXAMETHASONE TAB [Concomitant]
     Indication: PROPHYLACTIC CHEMOTHERAPY
  10. CARBOPLATIN [Concomitant]
     Dates: start: 20081204
  11. PACLITAXEL [Concomitant]
     Dates: start: 20081204

REACTIONS (8)
  - ANGIOEDEMA [None]
  - DRY SKIN [None]
  - FLUSHING [None]
  - PALPITATIONS [None]
  - RASH [None]
  - SKIN WARM [None]
  - SWELLING [None]
  - URTICARIA [None]
